FAERS Safety Report 14336245 (Version 1)
Quarter: 2017Q4

REPORT INFORMATION
  Report Type: Report from Study
  Country: US (occurrence: US)
  Receive Date: 20171229
  Receipt Date: 20171229
  Transmission Date: 20180321
  Serious: Yes (Other)
  Sender: FDA-Public Use
  Company Number: US-BAYER-2017-203310

PATIENT
  Age: 73 Year
  Sex: Female

DRUGS (1)
  1. STIVARGA [Suspect]
     Active Substance: REGORAFENIB
     Indication: COLON CANCER
     Dosage: 4 TABLETS DAILY FOR 21 DAYS ON AND 7 DAYS OFF AND REPEAT CYCLE AS DIRECTED
     Route: 048
     Dates: start: 20170809, end: 20171220

REACTIONS (8)
  - Blister [None]
  - Adverse drug reaction [None]
  - Decreased appetite [None]
  - Gait inability [None]
  - Hyperkeratosis [None]
  - Skin ulcer [None]
  - Dyspepsia [None]
  - Weight decreased [Unknown]
